FAERS Safety Report 8179806-1 (Version None)
Quarter: 2012Q1

REPORT INFORMATION
  Report Type: 
  Country: None (occurrence: None)
  Receive Date: 20120302
  Receipt Date: 20120223
  Transmission Date: 20120608
  Serious: Yes (Hospitalization)
  Sender: FDA-Public Use
  Company Number: US-BAYER-2011-069215

PATIENT
  Age: 54 Year
  Sex: Female
  Weight: 66 kg

DRUGS (4)
  1. FLUOXETINE [Concomitant]
     Indication: STRESS
     Dosage: UNK
     Dates: start: 20020101
  2. ASCORBIC ACID [Concomitant]
     Dosage: UNK
     Dates: start: 19840101
  3. YAZ [Suspect]
     Indication: PREMENSTRUAL SYNDROME
     Dosage: UNK
     Dates: start: 20060901, end: 20081001
  4. DEPAKOTE [Concomitant]
     Indication: MIGRAINE
     Dosage: UNK
     Dates: start: 20040101, end: 20100101

REACTIONS (8)
  - FEAR [None]
  - ANXIETY [None]
  - THROMBOSIS [None]
  - PAIN [None]
  - STRESS [None]
  - ANHEDONIA [None]
  - INJURY [None]
  - COLITIS [None]
